FAERS Safety Report 10183286 (Version 1)
Quarter: 2014Q2

REPORT INFORMATION
  Report Type: Spontaneous
  Country: AU (occurrence: AU)
  Receive Date: 20140520
  Receipt Date: 20140520
  Transmission Date: 20141212
  Serious: Yes (Life-Threatening)
  Sender: FDA-Public Use
  Company Number: AU-BAXTER-2014BAX023950

PATIENT
  Age: 43 Year
  Sex: Female

DRUGS (6)
  1. KIOVIG NORMAL IMMUNOGLOBULIN (HUMAN) 10G/100 ML. [Suspect]
     Indication: PRODUCT USED FOR UNKNOWN INDICATION
     Dosage: 50G X 2
     Route: 042
     Dates: start: 20140422, end: 20140423
  2. ASPIRIN [Concomitant]
     Indication: PROPHYLAXIS
     Dosage: MANE
     Route: 048
  3. METHOTREXATE [Concomitant]
     Indication: INCLUSION BODY MYOSITIS
     Route: 048
  4. SOMAC [Concomitant]
     Indication: GASTROOESOPHAGEAL REFLUX DISEASE
     Route: 048
  5. PREDNISOLONE [Concomitant]
     Indication: INCLUSION BODY MYOSITIS
     Dosage: SLIDING SCALE
     Route: 048
  6. DEPO PROVERA [Concomitant]
     Indication: CONTRACEPTION
     Route: 030

REACTIONS (2)
  - Pulmonary embolism [Recovered/Resolved]
  - Meningitis aseptic [Recovered/Resolved]
